FAERS Safety Report 8212816-4 (Version None)
Quarter: 2012Q1

REPORT INFORMATION
  Report Type: 
  Country: None (occurrence: None)
  Receive Date: 20120315
  Receipt Date: 20120307
  Transmission Date: 20120608
  Serious: Yes (Hospitalization, Other)
  Sender: FDA-Public Use
  Company Number: PHHY2012BE016757

PATIENT
  Age: 62 Year
  Sex: Female

DRUGS (7)
  1. ATORVASTATIN [Concomitant]
     Dosage: 20 MG, QD
  2. METFORMIN HCL [Suspect]
     Indication: TYPE 2 DIABETES MELLITUS
     Dosage: 850 MG, TID
  3. OLMESARTAN MEDOXOMIL [Suspect]
     Dosage: 40 MG, DAILY
  4. NOREPINEPHRINE BITARTRATE [Concomitant]
     Dosage: 0.16 UG/KG, PER MINUTE
  5. AMLODIPINE [Concomitant]
     Dosage: 10 MG, QD
  6. INSULIN [Concomitant]
     Indication: TYPE 2 DIABETES MELLITUS
     Route: 058
  7. AMOXICILLIN AND CLAVULANATE POTASSIUM [Concomitant]
     Indication: BETA HAEMOLYTIC STREPTOCOCCAL INFECTION

REACTIONS (10)
  - BETA HAEMOLYTIC STREPTOCOCCAL INFECTION [None]
  - ABDOMINAL PAIN [None]
  - DISORIENTATION [None]
  - NAUSEA [None]
  - VOMITING [None]
  - RENAL FAILURE ACUTE [None]
  - LACTIC ACIDOSIS [None]
  - ASPARTATE AMINOTRANSFERASE INCREASED [None]
  - ALANINE AMINOTRANSFERASE INCREASED [None]
  - DIARRHOEA [None]
